FAERS Safety Report 6038255-2 (Version None)
Quarter: 2009Q1

REPORT INFORMATION
  Report Type: 
  Country: None (occurrence: None)
  Receive Date: 20090115
  Receipt Date: 20090108
  Transmission Date: 20090719
  Serious: No
  Sender: FDA-Public Use
  Company Number: GB-ABBOTT-08P-167-0490382-00

PATIENT
  Sex: Female
  Weight: 113 kg

DRUGS (3)
  1. REDUCTIL [Suspect]
     Indication: OBESITY
     Dates: start: 20050908, end: 20081006
  2. DICLOFENAC [Concomitant]
     Indication: SCIATICA
     Route: 048
     Dates: start: 20081117, end: 20081220
  3. ACETAMINOPHEN W/ CODEINE [Concomitant]
     Indication: SCIATICA
     Dosage: 8/500 QDS PRN
     Route: 048
     Dates: start: 20081117, end: 20081220

REACTIONS (1)
  - RECTAL HAEMORRHAGE [None]
